FAERS Safety Report 7862675-4 (Version None)
Quarter: 2011Q4

REPORT INFORMATION
  Report Type: 
  Country: None (occurrence: None)
  Receive Date: 20111027
  Receipt Date: 20101111
  Transmission Date: 20120403
  Serious: No
  Sender: FDA-Public Use
  Company Number: US-AMGEN-USASP2010004964

PATIENT
  Age: 49 Year
  Sex: Male

DRUGS (2)
  1. METHOTREXATE [Concomitant]
     Dates: start: 20080402
  2. ENBREL [Suspect]
     Indication: RHEUMATOID ARTHRITIS
     Dosage: 50 MG, QWK
     Dates: start: 20100402

REACTIONS (4)
  - STAPHYLOCOCCAL SKIN INFECTION [None]
  - HERPES ZOSTER [None]
  - INJECTION SITE URTICARIA [None]
  - INJECTION SITE OEDEMA [None]
